FAERS Safety Report 7917883-0 (Version None)
Quarter: 2011Q4

REPORT INFORMATION
  Report Type: 
  Country: None (occurrence: None)
  Receive Date: 20111116
  Receipt Date: 20111108
  Transmission Date: 20120403
  Serious: No
  Sender: FDA-Public Use
  Company Number: PHEH2011US009004

PATIENT
  Sex: Female

DRUGS (5)
  1. HYDROCHLOROTHIAZIDE [Concomitant]
     Dosage: 25 MG, QD
  2. CELEXA [Concomitant]
     Dosage: 10 MG, QD
  3. TASIGNA [Suspect]
     Dosage: 300 MG, BID
     Route: 048
  4. AMBIEN [Concomitant]
     Dosage: 10 MG, QD
  5. CALCIUM [Concomitant]
     Dosage: 600 MG, QD

REACTIONS (3)
  - CRYING [None]
  - ANXIETY [None]
  - PALPITATIONS [None]
